FAERS Safety Report 10592437 (Version 2)
Quarter: 2014Q4

REPORT INFORMATION
  Report Type: Spontaneous
  Country: US (occurrence: US)
  Receive Date: 20141119
  Receipt Date: 20141119
  Transmission Date: 20150529
  Serious: No
  Sender: FDA-Public Use
  Company Number: US-ASTRAZENECA-2011SE14758

PATIENT
  Age: 53 Year
  Sex: Female

DRUGS (1)
  1. ATACAND HCT [Suspect]
     Active Substance: CANDESARTAN CILEXETIL\HYDROCHLOROTHIAZIDE
     Dosage: 32/12.5 MG, 1 TABLET DAILY
     Route: 048

REACTIONS (1)
  - Diabetes mellitus [Unknown]
